FAERS Safety Report 12729601 (Version 4)
Quarter: 2016Q4

REPORT INFORMATION
  Report Type: Report from Study
  Country: US (occurrence: US)
  Receive Date: 20160909
  Receipt Date: 20161117
  Transmission Date: 20170207
  Serious: Yes (Hospitalization, Other)
  Sender: FDA-Public Use
  Company Number: US-SA-2016SA142196

PATIENT
  Age: 36 Year
  Sex: Female

DRUGS (5)
  1. TRILEPTAL [Suspect]
     Active Substance: OXCARBAZEPINE
     Route: 065
     Dates: start: 2016
  2. TRILEPTAL [Suspect]
     Active Substance: OXCARBAZEPINE
     Route: 065
     Dates: end: 2016
  3. PREDNISONE. [Concomitant]
     Active Substance: PREDNISONE
  4. TYSABRI [Concomitant]
     Active Substance: NATALIZUMAB
     Dates: end: 201607
  5. LEMTRADA [Suspect]
     Active Substance: ALEMTUZUMAB
     Indication: MULTIPLE SCLEROSIS
     Route: 041
     Dates: start: 20160725, end: 20160729

REACTIONS (40)
  - Bedridden [Not Recovered/Not Resolved]
  - Impaired driving ability [Not Recovered/Not Resolved]
  - Pain [Not Recovered/Not Resolved]
  - Hypoaesthesia [Not Recovered/Not Resolved]
  - Pyrexia [Not Recovered/Not Resolved]
  - Visual impairment [Unknown]
  - Oedema [Recovered/Resolved]
  - Myalgia [Not Recovered/Not Resolved]
  - Upper respiratory tract infection [Not Recovered/Not Resolved]
  - Vitamin D abnormal [Unknown]
  - Asthenia [Not Recovered/Not Resolved]
  - Breath sounds abnormal [Not Recovered/Not Resolved]
  - Blood pressure increased [Not Recovered/Not Resolved]
  - Emotional disorder [Not Recovered/Not Resolved]
  - Candida infection [Recovered/Resolved]
  - Feeling cold [Not Recovered/Not Resolved]
  - Weight increased [Recovering/Resolving]
  - Multiple sclerosis relapse [Recovering/Resolving]
  - Gait disturbance [Recovered/Resolved]
  - T-lymphocyte count abnormal [Not Recovered/Not Resolved]
  - Throat irritation [Not Recovered/Not Resolved]
  - Swelling face [Not Recovered/Not Resolved]
  - Influenza [Not Recovered/Not Resolved]
  - Electrolyte imbalance [Not Recovered/Not Resolved]
  - Urine sodium increased [Unknown]
  - Activities of daily living impaired [Not Recovered/Not Resolved]
  - Speech disorder [Not Recovered/Not Resolved]
  - Lymphocyte count abnormal [Not Recovered/Not Resolved]
  - Neck pain [Unknown]
  - Cough [Not Recovered/Not Resolved]
  - Paraesthesia [Not Recovered/Not Resolved]
  - Malaise [Not Recovered/Not Resolved]
  - Inappropriate antidiuretic hormone secretion [Not Recovered/Not Resolved]
  - Bone pain [Not Recovered/Not Resolved]
  - Pharyngeal oedema [Not Recovered/Not Resolved]
  - Depression [Not Recovered/Not Resolved]
  - Nuclear magnetic resonance imaging abnormal [Not Recovered/Not Resolved]
  - Dehydration [Recovered/Resolved]
  - Dizziness [Not Recovered/Not Resolved]
  - Non-cardiac chest pain [Not Recovered/Not Resolved]

NARRATIVE: CASE EVENT DATE: 2016
